FAERS Safety Report 9944914 (Version 1)
Quarter: 2014Q1

REPORT INFORMATION
  Report Type: Report from Study
  Country: US (occurrence: US)
  Receive Date: 20140303
  Receipt Date: 20140303
  Transmission Date: 20141002
  Serious: No
  Sender: FDA-Public Use
  Company Number: US-ABBVIE-13P-163-1054150-00

PATIENT
  Age: 62 Year
  Sex: Female

DRUGS (4)
  1. HUMIRA [Suspect]
     Indication: CROHN^S DISEASE
     Dates: start: 201209
  2. IMODIUM [Concomitant]
     Indication: DIARRHOEA
  3. HYMAX [Concomitant]
     Indication: DIARRHOEA
     Dosage: (UNKNOWN DOSE) DAILY
  4. CLIMARA HORMONE PATCH [Concomitant]
     Indication: HYSTERECTOMY

REACTIONS (2)
  - Psoriasis [Not Recovered/Not Resolved]
  - Arthralgia [Not Recovered/Not Resolved]
